FAERS Safety Report 7588330-6 (Version None)
Quarter: 2011Q3

REPORT INFORMATION
  Report Type: 
  Country: None (occurrence: None)
  Receive Date: 20110705
  Receipt Date: 20101118
  Transmission Date: 20111222
  Serious: Yes (Death, Other)
  Sender: FDA-Public Use
  Company Number: US-BAYER-201030086NA

PATIENT
  Sex: Male

DRUGS (5)
  1. ACETYLSALICYLIC ACID SRT [Concomitant]
  2. TRASYLOL [Suspect]
     Indication: CORONARY ARTERY BYPASS
     Route: 058
  3. ATENOLOL [Concomitant]
  4. DOPAMINE HCL [Concomitant]
  5. HYDROCHLOROTHIAZIDE [Concomitant]

REACTIONS (13)
  - ANXIETY [None]
  - DEPRESSION [None]
  - DEATH [None]
  - INJURY [None]
  - RENAL FAILURE [None]
  - RENAL INJURY [None]
  - FEAR [None]
  - STRESS [None]
  - EMOTIONAL DISTRESS [None]
  - PAIN [None]
  - DISABILITY [None]
  - ANHEDONIA [None]
  - MULTI-ORGAN FAILURE [None]
